FAERS Safety Report 7660335-6 (Version None)
Quarter: 2011Q3

REPORT INFORMATION
  Report Type: 
  Country: None (occurrence: None)
  Receive Date: 20110805
  Receipt Date: 20110728
  Transmission Date: 20111222
  Serious: Yes (Hospitalization, Other)
  Sender: FDA-Public Use
  Company Number: MX-ELI_LILLY_AND_COMPANY-MX201107007744

PATIENT
  Age: 28 Year
  Sex: Male

DRUGS (2)
  1. BYETTA [Suspect]
     Indication: DIABETES MELLITUS
     Dosage: 5 UG, BID
     Dates: start: 20110714
  2. PIOGLITAZONE HYDROCHLORIDE/METFORMIN HYDROCHLORIDE [Concomitant]
     Dosage: UNK, BID

REACTIONS (1)
  - PANCREATITIS [None]
